FAERS Safety Report 5366012-9 (Version None)
Quarter: 2007Q2

REPORT INFORMATION
  Report Type: 
  Country: None (occurrence: None)
  Receive Date: 20070611
  Receipt Date: 20070221
  Transmission Date: 20071010
  Serious: Yes (Other)
  Sender: FDA-Public Use
  Company Number: USA-2007-0026567

PATIENT
  Age: 38 Year
  Sex: Male

DRUGS (2)
  1. OXYCONTIN [Suspect]
     Indication: MUSCULOSKELETAL PAIN
     Dosage: 80 MG, Q12H, ORAL
     Route: 048
     Dates: start: 20020101, end: 20061201
  2. ROXICODONE [Concomitant]

REACTIONS (3)
  - AMNESIA [None]
  - DRUG DEPENDENCE [None]
  - SOMNOLENCE [None]
